FAERS Safety Report 5281037-X (Version None)
Quarter: 2007Q1

REPORT INFORMATION
  Report Type: 
  Country: None (occurrence: None)
  Receive Date: 20061229
  Receipt Date: 20060817
  Transmission Date: 20070707
  Serious: Yes (Other)
  Sender: FDA-Public Use
  Company Number: 2006UW16424

PATIENT
  Age: 65 Year
  Sex: Male
  Weight: 122.46 kg

DRUGS (15)
  1. CRESTOR [Suspect]
     Indication: BLOOD CHOLESTEROL INCREASED
     Dosage: 10 MG PO
     Route: 048
     Dates: start: 20060801
  2. ACIPHEX [Concomitant]
  3. LISINOPRIL [Concomitant]
  4. FOLIC ACID [Concomitant]
  5. TOPAMAX [Concomitant]
  6. CYMBALTA [Concomitant]
  7. ANTARA [Concomitant]
  8. WELLBUTRIN SR [Concomitant]
  9. METFORMIN [Concomitant]
  10. NIACIN [Concomitant]
  11. GLUCOSAMINE [Concomitant]
  12. CENTRUM SILVER [Concomitant]
  13. CITRACAL [Concomitant]
  14. ASPIRIN [Concomitant]
  15. HOMATROPINE [Concomitant]

REACTIONS (5)
  - BALANCE DISORDER [None]
  - DYSPNOEA [None]
  - FATIGUE [None]
  - HYPERHIDROSIS [None]
  - MUSCULAR WEAKNESS [None]
